FAERS Safety Report 19981940 (Version 3)
Quarter: 2023Q4

REPORT INFORMATION
  Report Type: Other
  Country: US (occurrence: US)
  Receive Date: 20211022
  Receipt Date: 20231026
  Transmission Date: 20240109
  Serious: Yes (Death, Hospitalization, Other)
  Sender: FDA-Public Use
  Company Number: US-NEUROCRINE BIOSCIENCES INC.-2021NBI05940

PATIENT

DRUGS (4)
  1. INGREZZA [Suspect]
     Active Substance: VALBENAZINE
     Indication: Tardive dyskinesia
     Dosage: 80 MILLIGRAM, QD
     Route: 048
     Dates: start: 202209
  2. INGREZZA [Suspect]
     Active Substance: VALBENAZINE
     Dosage: 40 MILLIGRAM, QD
     Route: 048
     Dates: start: 202204, end: 202209
  3. INGREZZA [Suspect]
     Active Substance: VALBENAZINE
     Dosage: 40 MILLIGRAM, QD
     Route: 048
     Dates: start: 202106
  4. XANAX [Concomitant]
     Active Substance: ALPRAZOLAM
     Indication: Anxiety

REACTIONS (11)
  - Cardiac failure congestive [Fatal]
  - Chronic obstructive pulmonary disease [Fatal]
  - Hypervolaemia [Recovered/Resolved]
  - Diabetes mellitus [Unknown]
  - Transient ischaemic attack [Unknown]
  - Osteoporotic fracture [Unknown]
  - Peripheral swelling [Unknown]
  - Dyspnoea [Unknown]
  - Back pain [Unknown]
  - Bruxism [Not Recovered/Not Resolved]
  - Muscle spasms [Not Recovered/Not Resolved]

NARRATIVE: CASE EVENT DATE: 20211001
